FAERS Safety Report 21367470 (Version 2)
Quarter: 2022Q4

REPORT INFORMATION
  Report Type: Spontaneous
  Country: GB (occurrence: GB)
  Receive Date: 20220923
  Receipt Date: 20221003
  Transmission Date: 20230113
  Serious: Yes (Other)
  Sender: FDA-Public Use
  Company Number: GB-BAXTER-2022BAX019831

PATIENT

DRUGS (4)
  1. ADENOSINE [Suspect]
     Active Substance: ADENOSINE
     Indication: Supraventricular tachycardia
     Dosage: 150 UG/KG
     Route: 040
  2. ADENOSINE [Suspect]
     Active Substance: ADENOSINE
     Dosage: INCREMENTING BOLUS DOSES UP TO 300 UG/KG
     Route: 040
  3. AMIODARONE [Concomitant]
     Active Substance: AMIODARONE
     Indication: Supraventricular tachycardia
     Dosage: 10 UG/KG (10 UG/KG/MIN)
     Route: 065
  4. AMIODARONE [Concomitant]
     Active Substance: AMIODARONE
     Dosage: 15 UG/KG (INCREASED TO 15 UG/KG/MIN)
     Route: 065

REACTIONS (3)
  - Supraventricular tachycardia [Recovering/Resolving]
  - Disease recurrence [Recovering/Resolving]
  - Therapy partial responder [Unknown]
